FAERS Safety Report 25643858 (Version 1)
Quarter: 2025Q3

REPORT INFORMATION
  Report Type: Spontaneous
  Country: PA (occurrence: PA)
  Receive Date: 20250805
  Receipt Date: 20250805
  Transmission Date: 20251021
  Serious: Yes (Other)
  Sender: SANDOZ
  Company Number: PA-002147023-NVSC2025PA122663

PATIENT
  Sex: Female

DRUGS (2)
  1. FULVESTRANT [Suspect]
     Active Substance: FULVESTRANT
     Indication: Product used for unknown indication
     Dosage: 3 DF, QD
     Route: 065
  2. KISQALI [Suspect]
     Active Substance: RIBOCICLIB SUCCINATE
     Indication: Breast cancer metastatic
     Dosage: 3 DOSAGE FORM (600 MG), QD (ONCE DAILY/ IN THE MORNING)
     Route: 048
     Dates: start: 20250528

REACTIONS (3)
  - Metastases to bone [Unknown]
  - Neoplasm progression [Unknown]
  - Drug ineffective [Unknown]
